FAERS Safety Report 14305149 (Version 1)
Quarter: 2017Q4

REPORT INFORMATION
  Report Type: Spontaneous
  Country: JP (occurrence: JP)
  Receive Date: 20171219
  Receipt Date: 20171219
  Transmission Date: 20180321
  Serious: Yes (Hospitalization)
  Sender: FDA-Public Use
  Company Number: JP-OTSUKA-010192

PATIENT
  Age: 88 Year
  Sex: Male
  Weight: 40.2 kg

DRUGS (11)
  1. YOKUKANSAN [Concomitant]
     Active Substance: HERBALS
     Dosage: POWDER
     Dates: start: 20100420
  2. ABILIFY [Suspect]
     Active Substance: ARIPIPRAZOLE
     Indication: SENILE PSYCHOSIS
  3. YOKU-KAN-SAN [Concomitant]
     Active Substance: HERBALS
     Indication: INSOMNIA
     Dosage: 2.5 G, TID
     Route: 048
     Dates: start: 20100420
  4. DAI-KENCHU-TO [Concomitant]
     Active Substance: MALTOSE
     Dosage: 7.5 G, TID
     Route: 048
  5. URIEF [Concomitant]
     Active Substance: SILODOSIN
     Indication: HYPERTENSION
     Dosage: 8 MG, BID
     Route: 048
  6. BIODIASTASE [Concomitant]
     Dosage: TAB
  7. ABILIFY [Suspect]
     Active Substance: ARIPIPRAZOLE
     Indication: HALLUCINATION
     Dosage: 6 MG, QD
     Route: 048
     Dates: start: 20100414, end: 20100621
  8. ABILIFY [Suspect]
     Active Substance: ARIPIPRAZOLE
     Indication: DELUSION
     Dosage: 3 MG, QD
     Route: 048
     Dates: start: 20100622
  9. AMLODIN OD [Concomitant]
     Active Substance: AMLODIPINE BESYLATE
     Indication: HYPERTENSION
     Dosage: 5 MG, QD
     Route: 048
  10. MACTASE-S [Concomitant]
     Dosage: 3 DF, TID
     Route: 048
  11. MARZULENE-S [Concomitant]
     Active Substance: SODIUM GUALENATE
     Dosage: 2 G, TID
     Route: 048

REACTIONS (1)
  - Ileus [Recovered/Resolved]

NARRATIVE: CASE EVENT DATE: 20100521
